FAERS Safety Report 9688813 (Version 1)
Quarter: 2013Q4

REPORT INFORMATION
  Report Type: Spontaneous
  Country: US (occurrence: US)
  Receive Date: 20131114
  Receipt Date: 20131114
  Transmission Date: 20140711
  Serious: Yes (Hospitalization)
  Sender: FDA-Public Use
  Company Number: US-BAYER-2013-138596

PATIENT
  Age: 38 Year
  Sex: Female

DRUGS (4)
  1. YASMIN [Suspect]
     Route: 048
  2. ACIPHEX [Concomitant]
     Dosage: 20 MG, PRN
  3. TYLOX [Concomitant]
     Dosage: 1, Q (INTERPRETED AS EVERY) 4 [HOURS] PRN
     Route: 048
  4. ADVIL [Concomitant]
     Dosage: 200 MG, 2-3 TAB
     Route: 048

REACTIONS (1)
  - Deep vein thrombosis [None]
